FAERS Safety Report 21446699 (Version 1)
Quarter: 2022Q4

REPORT INFORMATION
  Report Type: Spontaneous
  Country: US (occurrence: None)
  Receive Date: 20221011
  Receipt Date: 20221011
  Transmission Date: 20230112
  Serious: Yes (Hospitalization, Other)
  Sender: FDA-Public Use
  Company Number: None

PATIENT
  Age: 27 Year
  Sex: Female
  Weight: 47 kg

DRUGS (7)
  1. CLONIDINE HYDROCHLORIDE [Suspect]
     Active Substance: CLONIDINE HYDROCHLORIDE
     Indication: Hypertension
     Dosage: FREQUENCY : ONCE;?
     Route: 048
     Dates: start: 20220315, end: 20220315
  2. CLONIDINE [Suspect]
     Active Substance: CLONIDINE
  3. DOXAZOSIN [Suspect]
     Active Substance: DOXAZOSIN MESYLATE
  4. HYDRALAZINE [Suspect]
     Active Substance: HYDRALAZINE HYDROCHLORIDE
  5. SPIRONOLACTONE [Suspect]
     Active Substance: SPIRONOLACTONE
  6. TORSEMIDE [Suspect]
     Active Substance: TORSEMIDE
  7. VALSARTAN [Suspect]
     Active Substance: VALSARTAN

REACTIONS (3)
  - Hypotension [None]
  - Somnolence [None]
  - Therapy cessation [None]

NARRATIVE: CASE EVENT DATE: 20220315
